FAERS Safety Report 4838468-9 (Version None)
Quarter: 2005Q4

REPORT INFORMATION
  Report Type: 
  Country: None (occurrence: None)
  Receive Date: 20051129
  Receipt Date: 20051117
  Transmission Date: 20060501
  Serious: Yes (Death, Hospitalization, Other)
  Sender: FDA-Public Use
  Company Number: PHBS2005DK17029

PATIENT
  Age: 46 Year
  Sex: Male

DRUGS (24)
  1. SEREVENT [Concomitant]
     Dosage: 50 UG, BID
     Route: 065
  2. CISORDINOL [Concomitant]
     Dosage: 500 MG, BIW
     Route: 030
  3. BERODUAL [Concomitant]
     Dosage: 1 DF, QID
     Route: 048
  4. B-COMBIN FORTE TABLET [Concomitant]
     Dosage: 2 TABLETS/D
     Route: 048
  5. PERAGIT [Concomitant]
     Dosage: 2 MG, TID
     Route: 048
     Dates: end: 20030204
  6. DEPRAKINE [Concomitant]
     Dosage: 500 MG, TID
     Route: 048
  7. LANSOPRAZOLE [Concomitant]
     Dosage: 30 MG/D
     Route: 048
  8. MAGNESIA [Concomitant]
     Dosage: 1 G, BID
     Route: 048
  9. ATROPINE [Concomitant]
     Dosage: 0.25 MG, BID
     Route: 048
  10. TAFIL [Concomitant]
     Dosage: 0.25 MG, TID
     Route: 048
     Dates: end: 20031209
  11. LEPONEX [Suspect]
     Indication: SCHIZOPHRENIA
     Dosage: 300 MG, TID
     Route: 048
     Dates: start: 20000329, end: 20000521
  12. LEPONEX [Suspect]
     Dosage: 850 MG/D
     Route: 048
     Dates: start: 20000522, end: 20000620
  13. LEPONEX [Suspect]
     Dosage: 300 MG, TID
     Route: 048
     Dates: start: 20000621, end: 20010702
  14. LEPONEX [Suspect]
     Dosage: 875 MG/D
     Route: 048
     Dates: start: 20010703, end: 20010716
  15. LEPONEX [Suspect]
     Dosage: 850 MG/D
     Route: 048
     Dates: start: 20010717, end: 20011008
  16. LEPONEX [Suspect]
     Dosage: 825 MG/D
     Route: 048
     Dates: start: 20011009, end: 20020923
  17. LEPONEX [Suspect]
     Dosage: 800 MG/D
     Route: 048
     Dates: start: 20020924, end: 20030616
  18. LEPONEX [Suspect]
     Dosage: 850 MG/D
     Route: 048
     Dates: start: 20030617
  19. ACETAMINOPHEN [Concomitant]
     Dosage: 1 G, QID
     Route: 048
     Dates: end: 20010703
  20. ALMINOX [Concomitant]
     Dosage: 1 DF, QID
     Route: 048
     Dates: end: 20010703
  21. AKINETON [Concomitant]
     Dosage: 2 MG/D
     Route: 048
     Dates: start: 20030204
  22. TRUXAL [Concomitant]
     Dosage: 50-100 MAX 200 MG/D
     Dates: start: 20031209
  23. OXAZEPAM [Concomitant]
     Dosage: 15 MG/D + 15 MG IF NECESSARY
     Route: 048
     Dates: start: 20031123
  24. INFLUENZA VACCINE [Concomitant]
     Dosage: 0.5 ML

REACTIONS (22)
  - ABSCESS [None]
  - ASTHMA [None]
  - BACK PAIN [None]
  - BLOOD IMMUNOGLOBULIN M DECREASED [None]
  - BRONCHITIS CHRONIC [None]
  - CARDIAC DISORDER [None]
  - CEREBRAL DISORDER [None]
  - CHEST PAIN [None]
  - CHRONIC OBSTRUCTIVE PULMONARY DISEASE [None]
  - CONJUNCTIVITIS ALLERGIC [None]
  - COUGH [None]
  - DRUG LEVEL INCREASED [None]
  - DRUG TOXICITY [None]
  - FUNGAL INFECTION [None]
  - HYPERTENSION [None]
  - HYPONATRAEMIA [None]
  - LEUKOCYTOSIS [None]
  - PLATELET COUNT INCREASED [None]
  - PNEUMONIA [None]
  - POLYDIPSIA [None]
  - PRURITUS GENERALISED [None]
  - WHITE BLOOD CELL COUNT INCREASED [None]
